FAERS Safety Report 7450580-7 (Version None)
Quarter: 2011Q2

REPORT INFORMATION
  Report Type: 
  Country: None (occurrence: None)
  Receive Date: 20110502
  Receipt Date: 20090930
  Transmission Date: 20111010
  Serious: Yes (Death, Hospitalization, Disabling, Other)
  Sender: FDA-Public Use
  Company Number: US-BAYER-200934342NA

PATIENT
  Age: 57 Year
  Sex: Female
  Weight: 77.098 kg

DRUGS (16)
  1. PROTAMINE SULFATE [Concomitant]
     Dosage: 400 MG, UNK
     Route: 042
     Dates: start: 20050307, end: 20050307
  2. SUCCINYLCHOLINE CHLORIDE [Concomitant]
     Dosage: 100 MG, UNK
     Route: 042
     Dates: start: 20050307, end: 20050307
  3. LIDOCAINE [Concomitant]
     Dosage: 100 MG, UNK
     Route: 042
     Dates: start: 20050307, end: 20050307
  4. FENTANYL [Concomitant]
     Dosage: 60 ML, UNK
     Dates: start: 20050307, end: 20050307
  5. MILRINONE [Concomitant]
     Dosage: UNK
     Route: 042
     Dates: start: 20050307, end: 20050307
  6. TRASYLOL [Suspect]
     Indication: MITRAL VALVE REPLACEMENT
     Dosage: 200 CC
     Dates: start: 20050307, end: 20050307
  7. MIDAZOLAM [Concomitant]
     Dosage: 35 MG, UNK
     Route: 042
     Dates: start: 20050307, end: 20050307
  8. SEVOFLURANE [Concomitant]
     Dosage: INHALED
     Dates: start: 20050307, end: 20050307
  9. VANCOMYCIN [Concomitant]
     Dosage: 1 G, UNK
     Route: 042
     Dates: start: 20050307, end: 20050307
  10. TRASYLOL [Suspect]
     Indication: TRICUSPID VALVE REPAIR
  11. AMBIEN [Concomitant]
  12. PANCURONIUM BROMIDE [Concomitant]
     Dosage: UNK
     Route: 042
     Dates: start: 20050307, end: 20050307
  13. NITROGLYCERIN [Concomitant]
     Dosage: UNK
     Route: 042
     Dates: start: 20050307, end: 20050307
  14. LEVOPHED [Concomitant]
     Dosage: UNK
     Route: 042
     Dates: start: 20050307
  15. HEPARIN [Concomitant]
     Dosage: UNK
     Route: 042
     Dates: start: 20050307, end: 20050307
  16. LASIX [Concomitant]
     Dosage: 20 MG, UNK
     Route: 042
     Dates: start: 20050307, end: 20050307

REACTIONS (14)
  - RENAL FAILURE [None]
  - ANXIETY [None]
  - DEATH [None]
  - DISABILITY [None]
  - UNEVALUABLE EVENT [None]
  - DEPRESSION [None]
  - ANHEDONIA [None]
  - FEAR [None]
  - EMOTIONAL DISTRESS [None]
  - PAIN [None]
  - MULTI-ORGAN FAILURE [None]
  - RENAL INJURY [None]
  - INJURY [None]
  - NERVOUSNESS [None]
